FAERS Safety Report 7687809-6 (Version None)
Quarter: 2011Q3

REPORT INFORMATION
  Report Type: 
  Country: None (occurrence: None)
  Receive Date: 20110817
  Receipt Date: 20110805
  Transmission Date: 20111222
  Serious: Yes (Other)
  Sender: FDA-Public Use
  Company Number: US-ELI_LILLY_AND_COMPANY-US201002004527

PATIENT
  Sex: Female
  Weight: 73.469 kg

DRUGS (11)
  1. FORTEO [Suspect]
     Dosage: 20 UG, DAILY (1/D)
     Route: 065
     Dates: start: 20100101
  2. FORTEO [Suspect]
     Dosage: 20 UG, DAILY (1/D)
     Route: 065
  3. THYROID THERAPY [Concomitant]
     Indication: THYROID DISORDER
     Dosage: 50 MG, UNK
     Dates: end: 20100701
  4. THYROID THERAPY [Concomitant]
     Dosage: 50 MG, UNK
  5. FORTEO [Suspect]
     Dosage: 20 UG, DAILY (1/D)
     Route: 065
  6. FORTEO [Suspect]
     Dosage: 20 UG, DAILY (1/D)
     Route: 065
  7. FORTEO [Suspect]
     Indication: OSTEOPOROSIS
     Dosage: 20 UG, DAILY (1/D)
     Route: 065
     Dates: start: 20091217, end: 20110101
  8. ZYRTEC [Concomitant]
     Indication: HYPERSENSITIVITY
  9. FORTEO [Suspect]
     Dosage: 20 UG, DAILY (1/D)
  10. FORTEO [Suspect]
     Dosage: 20 UG, DAILY (1/D)
  11. THYROID THERAPY [Concomitant]
     Dosage: 70 MG, UNK
     Dates: start: 20100701

REACTIONS (23)
  - MUSCULOSKELETAL PAIN [None]
  - MYALGIA [None]
  - MUSCULOSKELETAL DISCOMFORT [None]
  - JOINT RANGE OF MOTION DECREASED [None]
  - BACK PAIN [None]
  - MALAISE [None]
  - FEELING ABNORMAL [None]
  - RASH [None]
  - NAUSEA [None]
  - ARTHROPATHY [None]
  - FATIGUE [None]
  - ECZEMA [None]
  - PAIN [None]
  - SINUSITIS [None]
  - PRURITUS GENERALISED [None]
  - HYPOKINESIA [None]
  - MIDDLE INSOMNIA [None]
  - BREAST CANCER [None]
  - EPISTAXIS [None]
  - FALL [None]
  - NECK PAIN [None]
  - NEOPLASM MALIGNANT [None]
  - SOMNOLENCE [None]
